FAERS Safety Report 6665225-3 (Version None)
Quarter: 2010Q2

REPORT INFORMATION
  Report Type: 
  Country: None (occurrence: None)
  Receive Date: 20100402
  Receipt Date: 20100319
  Transmission Date: 20101027
  Serious: Yes (Hospitalization)
  Sender: FDA-Public Use
  Company Number: ES-ELI_LILLY_AND_COMPANY-ES201003006449

PATIENT
  Sex: Female

DRUGS (5)
  1. FORTEO [Suspect]
     Indication: OSTEOPOROSIS
     Dosage: 20 UG, DAILY (1/D)
     Route: 058
     Dates: start: 20081209
  2. TOPAMAX [Concomitant]
     Dosage: UNK, UNKNOWN
  3. NEUROTIN /00949202/ [Concomitant]
     Dosage: UNK, UNKNOWN
  4. DAFLON [Concomitant]
     Dosage: UNK, UNKNOWN
  5. ISODRIL [Concomitant]
     Dosage: UNK, UNKNOWN

REACTIONS (2)
  - DYSPNOEA [None]
  - THROMBOSIS [None]
